FAERS Safety Report 23182735 (Version 1)
Quarter: 2023Q4

REPORT INFORMATION
  Report Type: Spontaneous
  Country: CA (occurrence: CA)
  Receive Date: 20231114
  Receipt Date: 20231114
  Transmission Date: 20240110
  Serious: Yes (Hospitalization)
  Sender: FDA-Public Use
  Company Number: CA-PFIZER INC-202300361478

PATIENT
  Age: 26 Year
  Sex: Female

DRUGS (11)
  1. FLUCONAZOLE [Suspect]
     Active Substance: FLUCONAZOLE
     Indication: Fungal infection
     Dosage: UNK
     Route: 065
  2. HYDROCORTISONE [Suspect]
     Active Substance: HYDROCORTISONE
     Indication: Trichophytosis
     Dosage: UNK
     Route: 065
  3. HYDROCORTISONE [Suspect]
     Active Substance: HYDROCORTISONE
     Indication: Fungal infection
  4. CICLOPIROX OLAMINE [Suspect]
     Active Substance: CICLOPIROX OLAMINE
     Indication: Fungal infection
     Dosage: UNK
     Route: 061
  5. CICLOPIROX OLAMINE [Suspect]
     Active Substance: CICLOPIROX OLAMINE
     Indication: Trichophytosis
     Dosage: UNK
     Route: 065
  6. HYDROCORTISONE [Suspect]
     Active Substance: HYDROCORTISONE
     Indication: Trichophytosis
     Dosage: 1 %
     Route: 061
  7. HYDROCORTISONE [Suspect]
     Active Substance: HYDROCORTISONE
     Indication: Fungal infection
  8. ITRACONAZOLE [Suspect]
     Active Substance: ITRACONAZOLE
     Indication: Trichophytosis
     Dosage: 100 MG, 1X/DAY
     Route: 048
  9. ITRACONAZOLE [Suspect]
     Active Substance: ITRACONAZOLE
     Indication: Fungal infection
     Dosage: UNK
     Route: 065
  10. TERBINAFINE HYDROCHLORIDE [Suspect]
     Active Substance: TERBINAFINE HYDROCHLORIDE
     Indication: Trichophytosis
     Dosage: UNK
     Route: 065
  11. TERBINAFINE HYDROCHLORIDE [Suspect]
     Active Substance: TERBINAFINE HYDROCHLORIDE
     Indication: Fungal infection
     Dosage: UNK
     Route: 065

REACTIONS (2)
  - Drug ineffective [Unknown]
  - Fungal infection [Unknown]
